FAERS Safety Report 8960762 (Version 1)
Quarter: 2012Q4

REPORT INFORMATION
  Report Type: Spontaneous
  Country: US (occurrence: None)
  Receive Date: 20121107
  Receipt Date: 20121107
  Transmission Date: 20130627
  Serious: Yes (Other)
  Sender: FDA-Public Use
  Company Number: PP12-023

PATIENT
  Age: 33 Year
  Sex: Male
  Weight: 108.86 kg

DRUGS (1)
  1. UNSPECIFIED INGREDIENT [Suspect]
     Indication: HYPERSENSITIVITY
     Dates: start: 20120906

REACTIONS (2)
  - Pruritus [None]
  - Flushing [None]
